FAERS Safety Report 11337080 (Version 1)
Quarter: 2015Q3

REPORT INFORMATION
  Report Type: Report from Study
  Country: US (occurrence: US)
  Receive Date: 20150804
  Receipt Date: 20150804
  Transmission Date: 20151125
  Serious: Yes (Other)
  Sender: FDA-Public Use
  Company Number: US-GILEAD-2015-0165604

PATIENT
  Age: 60 Year
  Sex: Male

DRUGS (3)
  1. IMITREX                            /01044802/ [Concomitant]
     Indication: MIGRAINE
     Dosage: 100 MG, UNK
     Route: 048
  2. SOFOSBUVIR [Suspect]
     Active Substance: SOFOSBUVIR
     Indication: CHRONIC HEPATITIS C
     Dosage: 400 MG, UNK
     Route: 048
  3. XIFAXAN [Concomitant]
     Active Substance: RIFAXIMIN
     Indication: PAIN
     Dosage: 500 MG, UNK
     Route: 048

REACTIONS (4)
  - Hepatic pain [Not Recovered/Not Resolved]
  - Coma [Recovered/Resolved]
  - Dyspnoea [Unknown]
  - Ammonia increased [Unknown]

NARRATIVE: CASE EVENT DATE: 201507
